FAERS Safety Report 6288122-4 (Version None)
Quarter: 2009Q3

REPORT INFORMATION
  Report Type: 
  Country: None (occurrence: None)
  Receive Date: 20090729
  Receipt Date: 20090205
  Transmission Date: 20100115
  Serious: No
  Sender: FDA-Public Use
  Company Number: A0767139A

PATIENT
  Age: 19 Year
  Sex: Female

DRUGS (2)
  1. ZANTAC [Suspect]
     Dosage: 150MG SINGLE DOSE
     Route: 048
     Dates: start: 20080203
  2. PROZAC [Concomitant]

REACTIONS (1)
  - DRUG SCREEN POSITIVE [None]
